FAERS Safety Report 6379309-0 (Version None)
Quarter: 2009Q3

REPORT INFORMATION
  Report Type: 
  Country: None (occurrence: None)
  Receive Date: 20090928
  Receipt Date: 20090916
  Transmission Date: 20100115
  Serious: Yes (Death, Hospitalization, Other)
  Sender: FDA-Public Use
  Company Number: DE-AMGEN-UK332307

PATIENT
  Sex: Male
  Weight: 185 kg

DRUGS (14)
  1. VECTIBIX [Suspect]
     Indication: COLORECTAL CANCER
     Route: 042
     Dates: start: 20090121, end: 20090224
  2. DEXAMETHASONE 4MG TAB [Concomitant]
     Route: 042
  3. LYRICA [Concomitant]
  4. SPIRONOLACTONE [Concomitant]
  5. RAMIPRIL [Concomitant]
  6. TORSEMIDE [Concomitant]
  7. NULYTELY [Concomitant]
  8. FINASTERIDE [Concomitant]
  9. ALFUZOSIN HCL [Concomitant]
  10. PROPIVERINE HYDROCHLORIDE [Concomitant]
  11. DURAGESIC-100 [Concomitant]
     Route: 062
  12. NOVALGIN [Concomitant]
  13. MCP-RATIOPHARM [Concomitant]
  14. SEVREDOL [Concomitant]

REACTIONS (14)
  - ASCITES [None]
  - CHOLECYSTITIS ACUTE [None]
  - CHOLECYSTITIS CHRONIC [None]
  - GALLBLADDER OEDEMA [None]
  - GENERAL PHYSICAL HEALTH DETERIORATION [None]
  - MALIGNANT NEOPLASM PROGRESSION [None]
  - PAIN [None]
  - PNEUMONIA [None]
  - POST PROCEDURAL HAEMORRHAGE [None]
  - RASH [None]
  - SPLENOMEGALY [None]
  - THROMBOCYTOPENIA [None]
  - URINARY TRACT INFECTION [None]
  - UROGENITAL HAEMORRHAGE [None]
